FAERS Safety Report 6194184-5 (Version None)
Quarter: 2009Q2

REPORT INFORMATION
  Report Type: 
  Country: None (occurrence: None)
  Receive Date: 20090518
  Receipt Date: 20090512
  Transmission Date: 20091009
  Serious: Yes (Hospitalization)
  Sender: FDA-Public Use
  Company Number: JP-MERCK-0905USA01491

PATIENT
  Age: 71 Year
  Sex: Female

DRUGS (4)
  1. HYZAAR [Suspect]
     Indication: HYPERTENSION
     Route: 048
     Dates: start: 20090317, end: 20090417
  2. AMLODIPINE [Concomitant]
     Route: 048
  3. MEVALOTIN [Concomitant]
     Route: 048
  4. PRORENAL [Concomitant]
     Route: 048

REACTIONS (1)
  - PARALYSIS [None]
